FAERS Safety Report 4928214-2 (Version None)
Quarter: 2006Q1

REPORT INFORMATION
  Report Type: 
  Country: None (occurrence: None)
  Receive Date: 20060223
  Receipt Date: 20060210
  Transmission Date: 20060701
  Serious: Yes (Hospitalization)
  Sender: FDA-Public Use
  Company Number: SUS1-2004-00053

PATIENT
  Age: 25 Year
  Sex: Female

DRUGS (3)
  1. PENTASA [Suspect]
     Indication: COLITIS ULCERATIVE
     Dosage: 2250 MG/DAY; ORAL
     Route: 048
     Dates: start: 20031215, end: 20040108
  2. TIQUIZIUM BROMIDE [Concomitant]
  3. LOXOPROFEN SODIUM [Concomitant]

REACTIONS (12)
  - ANTIBODY TEST ABNORMAL [None]
  - ANTINUCLEAR ANTIBODY POSITIVE [None]
  - CHLAMYDIAL INFECTION [None]
  - CLOSTRIDIUM COLITIS [None]
  - DIARRHOEA HAEMORRHAGIC [None]
  - EOSINOPHIL PERCENTAGE INCREASED [None]
  - HAEMOGLOBIN DECREASED [None]
  - PLEURAL EFFUSION [None]
  - PLEURISY [None]
  - PNEUMONIA [None]
  - RED BLOOD CELL COUNT DECREASED [None]
  - THERAPY NON-RESPONDER [None]
